FAERS Safety Report 14954708 (Version 1)
Quarter: 2018Q2

REPORT INFORMATION
  Report Type: Report from Study
  Country: US (occurrence: US)
  Receive Date: 20180530
  Receipt Date: 20180530
  Transmission Date: 20180711
  Serious: Yes (Other)
  Sender: FDA-Public Use
  Company Number: US-ACTELION-A-NJ2018-172651

PATIENT
  Age: 65 Year
  Sex: Female

DRUGS (8)
  1. ADVAIR HFA [Concomitant]
     Active Substance: FLUTICASONE PROPIONATE\SALMETEROL XINAFOATE
     Dosage: (250-50) 1 INHALATION, BID
     Route: 055
     Dates: start: 20160128
  2. ARMOUR THYROID [Concomitant]
     Active Substance: THYROID, PORCINE
     Dosage: 90 MG, QD
     Dates: start: 20160205
  3. LEVOTHYROXINE. [Concomitant]
     Active Substance: LEVOTHYROXINE
     Dosage: 112 MCG, QD
     Dates: start: 20170926
  4. LEVEMIR [Concomitant]
     Active Substance: INSULIN DETEMIR
     Dosage: 50 UNITS, QD
     Route: 058
     Dates: start: 20160125
  5. METFORMIN [Concomitant]
     Active Substance: METFORMIN HYDROCHLORIDE
     Dosage: 1000 MG, BID
     Dates: start: 20160125
  6. HUMALOG [Concomitant]
     Active Substance: INSULIN LISPRO
     Dosage: 10-15 UNITS, TID
     Route: 058
     Dates: start: 20161215
  7. OPSUMIT [Suspect]
     Active Substance: MACITENTAN
     Indication: ESSENTIAL HYPERTENSION
     Dosage: 10 MG, QD
     Route: 048
     Dates: start: 20160621
  8. PROAIR HFA [Concomitant]
     Active Substance: ALBUTEROL SULFATE
     Dosage: 2 PUFFS EVERY 4-6 HOURS PRN
     Dates: start: 20180517

REACTIONS (2)
  - Rib fracture [Unknown]
  - Road traffic accident [Unknown]
